FAERS Safety Report 17460966 (Version 1)
Quarter: 2020Q1

REPORT INFORMATION
  Report Type: Spontaneous
  Country: US (occurrence: US)
  Receive Date: 20200226
  Receipt Date: 20200226
  Transmission Date: 20200409
  Serious: No
  Sender: FDA-Public Use
  Company Number: None

PATIENT
  Age: 56 Year
  Sex: Male
  Weight: 93.44 kg

DRUGS (4)
  1. ATORVASTATIN 10MG [Concomitant]
     Active Substance: ATORVASTATIN
  2. BRAFTOVI [Suspect]
     Active Substance: ENCORAFENIB
     Indication: SMALL INTESTINE CARCINOMA
     Route: 048
     Dates: start: 20200127, end: 20200226
  3. LISINOPRIL. [Concomitant]
     Active Substance: LISINOPRIL
  4. MEKTOVI [Suspect]
     Active Substance: BINIMETINIB
     Indication: SMALL INTESTINE CARCINOMA
     Route: 048
     Dates: start: 20200127, end: 20200226

REACTIONS (1)
  - Pyrexia [None]
